FAERS Safety Report 18886229 (Version 1)
Quarter: 2021Q1

REPORT INFORMATION
  Report Type: Other
  Country: US (occurrence: US)
  Receive Date: 20210212
  Receipt Date: 20210212
  Transmission Date: 20210420
  Serious: Yes (Other)
  Sender: FDA-Public Use
  Company Number: US-ROCHE-2762775

PATIENT
  Age: 51 Year
  Sex: Female
  Weight: 71.28 kg

DRUGS (3)
  1. OCREVUS [Suspect]
     Active Substance: OCRELIZUMAB
     Indication: MULTIPLE SCLEROSIS RELAPSE
     Dosage: DATE OF TREATMENT: 16/SEP/2020, 27/MAR?2020, 27/SEP/2019, 01/APR/2019, 01/AUG/2017, 31/AUG/2018 AND
     Route: 042
     Dates: start: 201708
  2. NP THYROID [Concomitant]
     Active Substance: LEVOTHYROXINE\LIOTHYRONINE
     Indication: HYPOTHYROIDISM
     Route: 048
  3. ALLEGRA [Concomitant]
     Active Substance: FEXOFENADINE HYDROCHLORIDE
     Indication: SINUSITIS
     Route: 048

REACTIONS (4)
  - Nasal septum deviation [Not Recovered/Not Resolved]
  - Sinusitis [Not Recovered/Not Resolved]
  - Multiple sclerosis relapse [Recovered/Resolved]
  - Magnetic resonance imaging abnormal [Not Recovered/Not Resolved]

NARRATIVE: CASE EVENT DATE: 202008
